FAERS Safety Report 4641143-7 (Version None)
Quarter: 2005Q2

REPORT INFORMATION
  Report Type: 
  Country: None (occurrence: None)
  Receive Date: 20050421
  Receipt Date: 20050204
  Transmission Date: 20051028
  Serious: Yes (Other)
  Sender: FDA-Public Use
  Company Number: AR-BOEHRINGER INGELHEIM PHARMMACEUTICALS, INC.-2005-BP-01832RA

PATIENT
  Sex: Male
  Weight: 81 kg

DRUGS (5)
  1. TIOTROPIUM INHALATION POWDER [Suspect]
     Route: 055
     Dates: start: 20031119, end: 20050104
  2. GLIOTEN [Concomitant]
     Indication: HYPERTENSION
     Route: 048
     Dates: start: 20000201
  3. NEUMOTEROL [Concomitant]
     Route: 055
     Dates: start: 20030327
  4. ALPLAX [Concomitant]
     Indication: INSOMNIA
     Route: 048
     Dates: start: 19980101
  5. DICLOFENAC SODIUM [Concomitant]
     Indication: ARTHRALGIA
     Route: 048
     Dates: start: 19990101

REACTIONS (1)
  - INTERSTITIAL LUNG DISEASE [None]
